FAERS Safety Report 12805045 (Version 1)
Quarter: 2016Q4

REPORT INFORMATION
  Report Type: Report from Study
  Country: US (occurrence: US)
  Receive Date: 20161004
  Receipt Date: 20161004
  Transmission Date: 20170207
  Serious: No
  Sender: FDA-Public Use
  Company Number: US-AMGEN-USASL2016132619

PATIENT
  Age: 69 Year
  Sex: Female

DRUGS (3)
  1. ENBREL [Suspect]
     Active Substance: ETANERCEPT
     Indication: RHEUMATOID ARTHRITIS
     Dosage: 50 MG, QWK
     Route: 065
  2. PREDNERSONE [Concomitant]
     Dosage: UNK
     Dates: end: 2016
  3. ARAVA [Concomitant]
     Active Substance: LEFLUNOMIDE
     Dosage: UNK
     Dates: end: 2016

REACTIONS (10)
  - Road traffic accident [Unknown]
  - Nasal mucosal discolouration [Unknown]
  - Swelling face [Unknown]
  - Contusion [Not Recovered/Not Resolved]
  - Tooth disorder [Unknown]
  - Pain [Unknown]
  - Anxiety [Unknown]
  - Laceration [Not Recovered/Not Resolved]
  - Pain in jaw [Unknown]
  - Tremor [Unknown]

NARRATIVE: CASE EVENT DATE: 2016
